FAERS Safety Report 5555047-9 (Version None)
Quarter: 2007Q4

REPORT INFORMATION
  Report Type: 
  Country: None (occurrence: None)
  Receive Date: 20071213
  Receipt Date: 20071203
  Transmission Date: 20080405
  Serious: Yes (Other)
  Sender: FDA-Public Use
  Company Number: HQWYE989913FEB04

PATIENT
  Age: 51 Year
  Sex: Male

DRUGS (1)
  1. SIROLIMUS [Suspect]
     Indication: FOCAL SEGMENTAL GLOMERULOSCLEROSIS
     Dosage: 6 MG DAY 1; 4 MG/D TO BE TITRATED TO MAINTAIN LEVELS BETWEEN 5-15 NG/ML X FIRST 4 MONTHS OF THERAPY
     Route: 048
     Dates: start: 20030401, end: 20031205

REACTIONS (2)
  - CONCOMITANT DISEASE PROGRESSION [None]
  - FOCAL SEGMENTAL GLOMERULOSCLEROSIS [None]
